FAERS Safety Report 12299117 (Version 1)
Quarter: 2016Q2

REPORT INFORMATION
  Report Type: Spontaneous
  Country: US (occurrence: US)
  Receive Date: 20160425
  Receipt Date: 20160425
  Transmission Date: 20160815
  Serious: Yes (Other)
  Sender: FDA-Public Use
  Company Number: US-INDICUS PHARMA-000409

PATIENT
  Age: 41 Year
  Sex: Female

DRUGS (2)
  1. ACETYLSALICYLIC ACID/CAFFEINE [Suspect]
     Active Substance: ASPIRIN\CAFFEINE
     Indication: PAIN
  2. METFORMIN [Suspect]
     Active Substance: METFORMIN HYDROCHLORIDE
     Indication: TYPE 2 DIABETES MELLITUS

REACTIONS (1)
  - Fixed drug eruption [Unknown]
